FAERS Safety Report 4601761-9 (Version None)
Quarter: 2005Q1

REPORT INFORMATION
  Report Type: 
  Country: None (occurrence: None)
  Receive Date: 20050131
  Receipt Date: 20041209
  Transmission Date: 20050727
  Serious: No
  Sender: FDA-Public Use
  Company Number: 200419482US

PATIENT
  Sex: Female

DRUGS (2)
  1. KETEK [Suspect]
     Dates: start: 20041207, end: 20041208
  2. SHOT (NOS) [Concomitant]

REACTIONS (1)
  - URTICARIA [None]
